FAERS Safety Report 21771449 (Version 8)
Quarter: 2023Q2

REPORT INFORMATION
  Report Type: Report from Study
  Country: DE (occurrence: None)
  Receive Date: 20221223
  Receipt Date: 20230523
  Transmission Date: 20230721
  Serious: Yes (Death, Life-Threatening)
  Sender: FDA-Public Use
  Company Number: DE-ROCHE-3230794

PATIENT
  Age: 67 Year
  Sex: Male
  Weight: 86 kg

DRUGS (1)
  1. OBINUTUZUMAB [Suspect]
     Active Substance: OBINUTUZUMAB
     Indication: Marginal zone lymphoma
     Dosage: MAINTENANCE PHASE; DATE OF LAST DOSE GIVEN PRIOR TO REPORTED SAE ON 13/SEP/2022
     Route: 042
     Dates: start: 20210408

REACTIONS (4)
  - COVID-19 pneumonia [Recovering/Resolving]
  - COVID-19 [Fatal]
  - Acute respiratory distress syndrome [Fatal]
  - Pneumothorax spontaneous [Recovered/Resolved]

NARRATIVE: CASE EVENT DATE: 20221115
